FAERS Safety Report 5981440-6 (Version None)
Quarter: 2008Q4

REPORT INFORMATION
  Report Type: 
  Country: None (occurrence: None)
  Receive Date: 20081205
  Receipt Date: 20081127
  Transmission Date: 20090506
  Serious: Yes (Hospitalization)
  Sender: FDA-Public Use
  Company Number: FR-ELI_LILLY_AND_COMPANY-FR200811006196

PATIENT
  Sex: Female

DRUGS (7)
  1. PROZAC [Suspect]
     Dosage: 20 MG, DAILY (1/D)
     Route: 048
     Dates: end: 20080623
  2. MODURETIC 5-50 [Concomitant]
     Dosage: 1 D/F, DAILY (1/D)
     Route: 048
     Dates: end: 20080623
  3. DIGOXINE [Concomitant]
     Dosage: 1 D/F, DAILY (1/D)
     Route: 048
  4. CIPRALAN [Concomitant]
     Dosage: 1 D/F, DAILY (1/D)
     Route: 048
  5. SIMVASTATIN [Concomitant]
     Dosage: 20 MG, DAILY (1/D)
     Route: 048
  6. ALPRAZOLAM [Concomitant]
     Dosage: 0.75 MG, DAILY (1/D)
     Route: 048
  7. THERALENE [Concomitant]
     Route: 048

REACTIONS (2)
  - GENERAL PHYSICAL HEALTH DETERIORATION [None]
  - HYPONATRAEMIA [None]
